FAERS Safety Report 21594314 (Version 1)
Quarter: 2022Q4

REPORT INFORMATION
  Report Type: Spontaneous
  Country: US (occurrence: None)
  Receive Date: 20221115
  Receipt Date: 20221115
  Transmission Date: 20230112
  Serious: No
  Sender: FDA-Public Use
  Company Number: US-ROCHE-3194257

PATIENT
  Sex: Female

DRUGS (6)
  1. SUSVIMO [Suspect]
     Active Substance: RANIBIZUMAB
     Indication: Neovascular age-related macular degeneration
     Route: 065
  2. SUSVIMO [Suspect]
     Active Substance: RANIBIZUMAB
  3. SUSVIMO [Suspect]
     Active Substance: RANIBIZUMAB
  4. SUSVIMO [Suspect]
     Active Substance: RANIBIZUMAB
  5. SUSVIMO [Suspect]
     Active Substance: RANIBIZUMAB
  6. SUSVIMO [Suspect]
     Active Substance: RANIBIZUMAB

REACTIONS (2)
  - Macular degeneration [Unknown]
  - Visual acuity reduced [Unknown]
